FAERS Safety Report 7659847-0 (Version None)
Quarter: 2011Q3

REPORT INFORMATION
  Report Type: 
  Country: None (occurrence: None)
  Receive Date: 20110805
  Receipt Date: 20110802
  Transmission Date: 20111222
  Serious: Yes (Other)
  Sender: FDA-Public Use
  Company Number: US-TEVA-294657USA

PATIENT
  Sex: Female

DRUGS (2)
  1. SERTRALINE HYDROCHLORIDE [Suspect]
  2. LORAZEPAM [Suspect]

REACTIONS (4)
  - WEIGHT INCREASED [None]
  - ACTIVITIES OF DAILY LIVING IMPAIRED [None]
  - ABDOMINAL DISTENSION [None]
  - OBSESSIVE-COMPULSIVE DISORDER [None]
